FAERS Safety Report 19040120 (Version 4)
Quarter: 2025Q3

REPORT INFORMATION
  Report Type: Spontaneous
  Country: EU (occurrence: EU)
  Receive Date: 20210323
  Receipt Date: 20250826
  Transmission Date: 20251021
  Serious: Yes (Life-Threatening, Hospitalization, Other)
  Sender: AUROBINDO
  Company Number: EU-MLMSERVICE-20210312-2779039-1

PATIENT
  Age: 3 Month

DRUGS (3)
  1. FLECAINIDE [Suspect]
     Active Substance: FLECAINIDE
     Indication: Arrhythmia prophylaxis
     Dosage: 3.5 MILLIGRAM/KILOGRAM, ONCE A DAY IN 3 DOSES
     Route: 065
     Dates: start: 2020, end: 2020
  2. FLECAINIDE [Suspect]
     Active Substance: FLECAINIDE
     Route: 065
     Dates: start: 2020, end: 2020
  3. PROPRANOLOL [Concomitant]
     Active Substance: PROPRANOLOL HYDROCHLORIDE
     Indication: Atrial tachycardia
     Dosage: 3 MILLIGRAM/KILOGRAM, ONCE A DAY DIVIDED IN 3 DOSES
     Route: 065

REACTIONS (15)
  - Atrioventricular block first degree [Recovered/Resolved]
  - Electrocardiogram QRS complex prolonged [Recovered/Resolved]
  - Toxicity to various agents [Recovered/Resolved]
  - Blood creatine phosphokinase increased [Unknown]
  - Supraventricular extrasystoles [Unknown]
  - Atrial tachycardia [Recovered/Resolved]
  - Ventricular dyskinesia [Recovered/Resolved]
  - Left ventricular dysfunction [Recovered/Resolved]
  - Blood lactate dehydrogenase increased [Unknown]
  - Blood lactic acid increased [Unknown]
  - Accidental overdose [Recovered/Resolved]
  - Incorrect dosage administered [Recovered/Resolved]
  - Decreased appetite [Recovering/Resolving]
  - Somnolence [Recovering/Resolving]
  - Product communication issue [Recovered/Resolved]

NARRATIVE: CASE EVENT DATE: 20200101
